FAERS Safety Report 19933739 (Version 1)
Quarter: 2021Q4

REPORT INFORMATION
  Report Type: Other
  Country: CN (occurrence: CN)
  Receive Date: 20211008
  Receipt Date: 20211008
  Transmission Date: 20220303
  Serious: Yes (Death)
  Sender: FDA-Public Use
  Company Number: CN-ROCHE-2930916

PATIENT

DRUGS (3)
  1. SINTILIMAB [Suspect]
     Active Substance: SINTILIMAB
     Indication: Gastric cancer
     Dosage: WEIGHT{60KG: 3MG/KG Q3W WEIGNT}=60KG:200 MG Q3W ON DAY 1 BY IV INFUSION
     Route: 042
  2. CAPECITABINE [Suspect]
     Active Substance: CAPECITABINE
     Indication: Gastric cancer
     Dosage: 1000 MG/M^2 ORALLY ACCORDING TO BODY SURFACE AREA (BSA) BID Q3W ON DAYS 1-14
     Route: 048
  3. OXALIPLATIN [Suspect]
     Active Substance: OXALIPLATIN
     Indication: Gastric cancer
     Dosage: 130 MG/M^2 Q3W ON DAY 1 BY IV INFUSION
     Route: 042

REACTIONS (1)
  - Death [Fatal]
